FAERS Safety Report 6865465-4 (Version None)
Quarter: 2010Q3

REPORT INFORMATION
  Report Type: 
  Country: None (occurrence: None)
  Receive Date: 20100721
  Receipt Date: 20080625
  Transmission Date: 20110219
  Serious: No
  Sender: FDA-Public Use
  Company Number: US-PFIZER INC-2008034509

PATIENT
  Sex: Male
  Weight: 97.5 kg

DRUGS (1)
  1. CHANTIX [Suspect]
     Indication: SMOKING CESSATION THERAPY
     Route: 048
     Dates: start: 20080321, end: 20080411

REACTIONS (6)
  - ABNORMAL DREAMS [None]
  - ARTHRALGIA [None]
  - DEPRESSION [None]
  - MOOD SWINGS [None]
  - MUSCULOSKELETAL PAIN [None]
  - MYALGIA [None]
